FAERS Safety Report 24646590 (Version 1)
Quarter: 2024Q4

REPORT INFORMATION
  Report Type: Spontaneous
  Country: US (occurrence: None)
  Receive Date: 20241120
  Receipt Date: 20241120
  Transmission Date: 20250114
  Serious: No
  Sender: Public
  Company Number: None

PATIENT
  Age: 72 Year
  Sex: Male
  Weight: 127 kg

DRUGS (3)
  1. BUPRENORPHINE [Suspect]
     Active Substance: BUPRENORPHINE
     Indication: Pain
     Dosage: 150.00 MG TWICE A DAY  OTHER
     Route: 050
     Dates: start: 20240722, end: 20240815
  2. ORBACTIV [Suspect]
     Active Substance: ORITAVANCIN
  3. CEFTRIAXONE SODIUM [Suspect]
     Active Substance: CEFTRIAXONE SODIUM

REACTIONS (8)
  - Amnesia [None]
  - Confusional state [None]
  - Headache [None]
  - Mental impairment [None]
  - Speech disorder [None]
  - Tremor [None]
  - Dysstasia [None]
  - Gait disturbance [None]

NARRATIVE: CASE EVENT DATE: 20240815
